FAERS Safety Report 17831925 (Version 1)
Quarter: 2020Q2

REPORT INFORMATION
  Report Type: Spontaneous
  Country: US (occurrence: US)
  Receive Date: 20200527
  Receipt Date: 20200527
  Transmission Date: 20200714
  Serious: No
  Sender: FDA-Public Use
  Company Number: US-ROCHE-2560484

PATIENT
  Sex: Female
  Weight: 68.55 kg

DRUGS (1)
  1. OCREVUS [Suspect]
     Active Substance: OCRELIZUMAB
     Indication: RELAPSING-REMITTING MULTIPLE SCLEROSIS
     Dosage: CURRENTLY RECEIVING 600 MG
     Route: 042
     Dates: start: 20190815

REACTIONS (1)
  - Menorrhagia [Unknown]
